FAERS Safety Report 24026921 (Version 1)
Quarter: 2024Q2

REPORT INFORMATION
  Report Type: Report from Study
  Country: CU (occurrence: CU)
  Receive Date: 20240628
  Receipt Date: 20240628
  Transmission Date: 20240716
  Serious: No
  Sender: FDA-Public Use
  Company Number: CU-ROCHE-3566653

PATIENT
  Age: 70 Year
  Sex: Female
  Weight: 89.0 kg

DRUGS (8)
  1. ALECTINIB [Suspect]
     Active Substance: ALECTINIB
     Indication: Lung cancer metastatic
     Route: 048
     Dates: start: 20211110
  2. ZOLEDRONIC ACID [Concomitant]
     Active Substance: ZOLEDRONIC ACID
     Indication: Spinal cord compression
     Route: 042
     Dates: start: 20211208
  3. HYDRALAZINE [Concomitant]
     Active Substance: HYDRALAZINE HYDROCHLORIDE
     Route: 048
     Dates: start: 20211109
  4. FERROUS FUMARATE [Concomitant]
     Active Substance: FERROUS FUMARATE
     Route: 048
     Dates: start: 20220518
  5. VITAMIN C [Concomitant]
     Active Substance: ASCORBIC ACID
     Route: 048
     Dates: start: 20220615
  6. CALCIUM [Concomitant]
     Active Substance: CALCIUM
     Indication: Nutritional supplementation
     Route: 048
     Dates: start: 20220921
  7. FOLIC ACID [Concomitant]
     Active Substance: FOLIC ACID
     Route: 048
     Dates: start: 20221012
  8. METRONIDAZOLE [Concomitant]
     Active Substance: METRONIDAZOLE
     Route: 048
     Dates: start: 20240309, end: 20240316

REACTIONS (1)
  - Diarrhoea [Recovered/Resolved]

NARRATIVE: CASE EVENT DATE: 20240308
